FAERS Safety Report 6174845-4 (Version None)
Quarter: 2009Q2

REPORT INFORMATION
  Report Type: 
  Country: None (occurrence: None)
  Receive Date: 20090430
  Receipt Date: 20081125
  Transmission Date: 20091009
  Serious: No
  Sender: FDA-Public Use
  Company Number: CA-ASTRAZENECA-2008UW26533

PATIENT
  Sex: Female

DRUGS (4)
  1. NEXIUM [Suspect]
     Route: 048
     Dates: start: 20031101
  2. NEXIUM [Suspect]
     Route: 048
  3. NEXIUM [Suspect]
     Route: 048
  4. LORAZEPAM [Concomitant]
     Indication: INSOMNIA

REACTIONS (3)
  - BRONCHITIS [None]
  - CHEST DISCOMFORT [None]
  - DYSPEPSIA [None]
